FAERS Safety Report 18511329 (Version 1)
Quarter: 2020Q4

REPORT INFORMATION
  Report Type: Spontaneous
  Country: US (occurrence: US)
  Receive Date: 20201116
  Receipt Date: 20201116
  Transmission Date: 20210114
  Serious: No
  Sender: FDA-Public Use
  Company Number: None

PATIENT
  Sex: Female

DRUGS (2)
  1. ABILIFY [Suspect]
     Active Substance: ARIPIPRAZOLE
  2. ZYPREXA [Suspect]
     Active Substance: OLANZAPINE

REACTIONS (3)
  - Toxicity to various agents [None]
  - Pain [None]
  - Chest pain [None]

NARRATIVE: CASE EVENT DATE: 20200901
